FAERS Safety Report 10043579 (Version 1)
Quarter: 2014Q1

REPORT INFORMATION
  Report Type: Spontaneous
  Country: US (occurrence: None)
  Receive Date: 20140327
  Receipt Date: 20140327
  Transmission Date: 20141002
  Serious: Yes (Hospitalization)
  Sender: FDA-Public Use
  Company Number: None

PATIENT
  Age: 59 Year
  Sex: Male
  Weight: 101 kg

DRUGS (2)
  1. WARFARIN [Suspect]
     Dosage: MG  PO?~12/24/2013 THRU 01/27/2014
     Route: 048
     Dates: start: 20131224, end: 20140127
  2. RIVAROXABAN [Suspect]
     Dosage: ~10/18/2013 THRU ~12/24/2013
     Route: 048
     Dates: start: 20131018, end: 20131224

REACTIONS (5)
  - International normalised ratio increased [None]
  - Epistaxis [None]
  - Haemorrhage [None]
  - Haemoglobin decreased [None]
  - Treatment noncompliance [None]
